FAERS Safety Report 19011833 (Version 1)
Quarter: 2021Q1

REPORT INFORMATION
  Report Type: Spontaneous
  Country: AU (occurrence: AU)
  Receive Date: 20210315
  Receipt Date: 20210315
  Transmission Date: 20210420
  Serious: Yes (Hospitalization)
  Sender: FDA-Public Use
  Company Number: AU-AMNEAL PHARMACEUTICALS-2021-AMRX-00811

PATIENT
  Age: 54 Year
  Sex: Male

DRUGS (1)
  1. MINOCYCLINE HYDROCHLORIDE. [Suspect]
     Active Substance: MINOCYCLINE HYDROCHLORIDE
     Indication: ALOPECIA
     Dosage: UNK
     Route: 048

REACTIONS (1)
  - Acute febrile neutrophilic dermatosis [Recovered/Resolved]
